FAERS Safety Report 5839291-9 (Version None)
Quarter: 2008Q3

REPORT INFORMATION
  Report Type: 
  Country: None (occurrence: None)
  Receive Date: 20080808
  Receipt Date: 20080728
  Transmission Date: 20090109
  Serious: Yes (Other)
  Sender: FDA-Public Use
  Company Number: US-PFIZER INC-2008063548

PATIENT
  Age: 65 Year

DRUGS (1)
  1. SUTENT [Suspect]
     Indication: RENAL CANCER
     Dates: start: 20080701, end: 20080701

REACTIONS (7)
  - CARDIAC DISORDER [None]
  - COLITIS [None]
  - DISEASE PROGRESSION [None]
  - EJECTION FRACTION DECREASED [None]
  - PYREXIA [None]
  - RENAL CANCER [None]
  - RESPIRATORY FAILURE [None]
